FAERS Safety Report 21816266 (Version 1)
Quarter: 2023Q1

REPORT INFORMATION
  Report Type: Spontaneous
  Country: US (occurrence: None)
  Receive Date: 20230104
  Receipt Date: 20230104
  Transmission Date: 20230418
  Serious: No
  Sender: FDA-Public Use
  Company Number: 2022A399457

PATIENT
  Age: 22808 Day
  Sex: Female
  Weight: 83.5 kg

DRUGS (4)
  1. TEZSPIRE [Suspect]
     Active Substance: TEZEPELUMAB-EKKO
     Indication: Asthma
     Route: 058
     Dates: start: 20220908
  2. DIPHENHYDRAMINE [Concomitant]
     Active Substance: DIPHENHYDRAMINE
     Dates: start: 20221203
  3. OTC LORATADINE [Concomitant]
     Dates: start: 20221204
  4. OTC LORATADINE [Concomitant]
     Dates: start: 20221205

REACTIONS (6)
  - Erythema [Not Recovered/Not Resolved]
  - Face oedema [Not Recovered/Not Resolved]
  - Periorbital oedema [Not Recovered/Not Resolved]
  - Pruritus [Not Recovered/Not Resolved]
  - Cough [Unknown]
  - Burning sensation [Unknown]

NARRATIVE: CASE EVENT DATE: 20221201
